FAERS Safety Report 13793705 (Version 1)
Quarter: 2017Q3

REPORT INFORMATION
  Report Type: Spontaneous
  Country: US (occurrence: US)
  Receive Date: 20170726
  Receipt Date: 20170726
  Transmission Date: 20171127
  Serious: Yes (Other)
  Sender: FDA-Public Use
  Company Number: US-PFIZER INC-2017321693

PATIENT
  Sex: Female

DRUGS (1)
  1. PREMARIN [Suspect]
     Active Substance: ESTROGENS, CONJUGATED
     Dosage: UNK

REACTIONS (6)
  - Thrombosis [Unknown]
  - Limb injury [Unknown]
  - Pain [Unknown]
  - Paralysis [Unknown]
  - Neuropathy peripheral [Unknown]
  - Myocardial infarction [Unknown]
